FAERS Safety Report 10049844 (Version 1)
Quarter: 2014Q2

REPORT INFORMATION
  Report Type: Spontaneous
  Country: IN (occurrence: IN)
  Receive Date: 20140401
  Receipt Date: 20140401
  Transmission Date: 20141212
  Serious: Yes (Death, Hospitalization, Other)
  Sender: FDA-Public Use
  Company Number: IN-MYLANLABS-2014S1006600

PATIENT
  Age: 25 Year
  Sex: Male
  Weight: 45 kg

DRUGS (6)
  1. ETHAMBUTOL [Suspect]
     Indication: TUBERCULOSIS
     Route: 065
     Dates: start: 2011
  2. CYCLOSERINE [Suspect]
     Indication: TUBERCULOSIS
     Route: 065
     Dates: start: 2011
  3. LEVOFLOXACIN [Suspect]
     Indication: TUBERCULOSIS
     Route: 065
     Dates: start: 2011
  4. ETHIONAMIDE [Concomitant]
     Indication: TUBERCULOSIS
     Route: 065
     Dates: start: 2011
  5. PYRAZINAMIDE [Concomitant]
     Indication: TUBERCULOSIS
     Route: 065
     Dates: start: 2011
  6. PYRIDOXINE [Concomitant]
     Indication: TUBERCULOSIS
     Route: 065
     Dates: start: 2011

REACTIONS (6)
  - Substance-induced psychotic disorder [Not Recovered/Not Resolved]
  - Completed suicide [Fatal]
  - Toxicity to various agents [Not Recovered/Not Resolved]
  - Deafness neurosensory [Unknown]
  - Tinnitus [Unknown]
  - Acne [Unknown]
